FAERS Safety Report 23842596 (Version 1)
Quarter: 2024Q2

REPORT INFORMATION
  Report Type: Spontaneous
  Country: BR (occurrence: BR)
  Receive Date: 20240510
  Receipt Date: 20240510
  Transmission Date: 20240716
  Serious: Yes (Other)
  Sender: FDA-Public Use
  Company Number: BR-002147023-NVSC2024BR098764

PATIENT
  Age: 68 Year
  Sex: Female

DRUGS (1)
  1. BETOPTIC S [Suspect]
     Active Substance: BETAXOLOL HYDROCHLORIDE
     Indication: Open angle glaucoma
     Dosage: 2.8 MILLIGRAM PER MILLILITRE (5ML, AROUND 30 YEARS AGO)
     Route: 065

REACTIONS (2)
  - Cardiovascular disorder [Unknown]
  - Product availability issue [Unknown]

NARRATIVE: CASE EVENT DATE: 20240502
